FAERS Safety Report 16871332 (Version 1)
Quarter: 2019Q4

REPORT INFORMATION
  Report Type: Spontaneous
  Country: US (occurrence: US)
  Receive Date: 20191001
  Receipt Date: 20191001
  Transmission Date: 20200122
  Serious: No
  Sender: FDA-Public Use
  Company Number: US-GLAXOSMITHKLINE-US2019174425

PATIENT

DRUGS (2)
  1. ABREVA [Suspect]
     Active Substance: DOCOSANOL
     Indication: ORAL HERPES
     Dosage: UNK
  2. AQUAPHOR HEALING [Suspect]
     Active Substance: PETROLATUM
     Indication: ORAL HERPES
     Dosage: UNK

REACTIONS (1)
  - Wrong technique in product usage process [Unknown]
